FAERS Safety Report 5361595-7 (Version None)
Quarter: 2007Q2

REPORT INFORMATION
  Report Type: 
  Country: None (occurrence: None)
  Receive Date: 20070619
  Receipt Date: 20070608
  Transmission Date: 20071010
  Serious: Yes (Hospitalization)
  Sender: FDA-Public Use
  Company Number: PHHO2007DE02220

PATIENT
  Age: 65 Year
  Sex: Female

DRUGS (4)
  1. CYCLOSPORINE [Suspect]
     Indication: RENAL TRANSPLANT
     Dosage: 400 MG, QD
     Dates: start: 20070103, end: 20070116
  2. MYCOPHENOLATE MOFETIL [Concomitant]
     Indication: RENAL TRANSPLANT
     Dates: start: 20070103
  3. FUROSEMIDE [Concomitant]
  4. VALGANCICLOVIR HCL [Concomitant]

REACTIONS (2)
  - RENAL FAILURE [None]
  - RENAL TUBULAR DISORDER [None]
